FAERS Safety Report 24316650 (Version 1)
Quarter: 2024Q3

REPORT INFORMATION
  Report Type: Spontaneous
  Country: CA (occurrence: CA)
  Receive Date: 20240913
  Receipt Date: 20240913
  Transmission Date: 20241017
  Serious: Yes (Hospitalization)
  Sender: BAYER
  Company Number: CA-BAYER-2024A129896

PATIENT
  Age: 45 Year
  Sex: Female

DRUGS (15)
  1. CIPROFLOXACIN [Suspect]
     Active Substance: CIPROFLOXACIN
  2. AZATHIOPRINE [Concomitant]
     Active Substance: AZATHIOPRINE
  3. COLCHICINE [Concomitant]
     Active Substance: COLCHICINE
     Route: 048
  4. ASPIRIN [Concomitant]
     Active Substance: ASPIRIN
     Route: 065
  5. ORILISSA [Concomitant]
     Active Substance: ELAGOLIX SODIUM
     Route: 048
  6. VITAMIN D2 [Concomitant]
     Active Substance: ERGOCALCIFEROL
  7. HYDROMORPHONE [Concomitant]
     Active Substance: HYDROMORPHONE
  8. HYDROXYCHLOROQUINE [Concomitant]
     Active Substance: HYDROXYCHLOROQUINE
  9. VITAMINS [Concomitant]
     Active Substance: VITAMINS
  10. TELMISARTAN [Concomitant]
     Active Substance: TELMISARTAN
     Route: 048
  11. PANTOPRAZOLE [Concomitant]
     Active Substance: PANTOPRAZOLE
  12. PREDNISONE [Concomitant]
     Active Substance: PREDNISONE
  13. ROSUVASTATIN [Concomitant]
     Active Substance: ROSUVASTATIN\ROSUVASTATIN CALCIUM
     Route: 048
  14. WARFARIN [Concomitant]
     Active Substance: WARFARIN
     Route: 048
  15. CANDESARTAN [Concomitant]
     Active Substance: CANDESARTAN

REACTIONS (1)
  - International normalised ratio abnormal [Recovered/Resolved]
